FAERS Safety Report 8510165-8 (Version None)
Quarter: 2012Q3

REPORT INFORMATION
  Report Type: 
  Country: None (occurrence: None)
  Receive Date: 20120713
  Receipt Date: 20120704
  Transmission Date: 20120928
  Serious: Yes (Hospitalization)
  Sender: FDA-Public Use
  Company Number: CO-GENZYME-CERZ-1002556

PATIENT
  Sex: Male
  Weight: 26 kg

DRUGS (1)
  1. CEREZYME [Suspect]
     Indication: GAUCHER'S DISEASE
     Dosage: 6 VIALS PER MONTH
     Route: 042
     Dates: start: 20101011

REACTIONS (3)
  - SYNCOPE [None]
  - CHILLS [None]
  - BLINDNESS [None]
